FAERS Safety Report 10181001 (Version 1)
Quarter: 2014Q2

REPORT INFORMATION
  Report Type: Spontaneous
  Country: US (occurrence: US)
  Receive Date: 20140519
  Receipt Date: 20140519
  Transmission Date: 20141212
  Serious: No
  Sender: FDA-Public Use
  Company Number: US-AMGEN INC.-USASP2014015817

PATIENT
  Age: 64 Year
  Sex: Female

DRUGS (12)
  1. PROLIA [Suspect]
     Indication: OSTEOPOROSIS POSTMENOPAUSAL
     Dosage: UNK
     Route: 065
     Dates: start: 2013
  2. SYNTHROID [Concomitant]
  3. BUSPAR [Concomitant]
  4. CLONAZEPAM [Concomitant]
  5. CYMBALTA [Concomitant]
  6. VITAMIN D                          /00107901/ [Concomitant]
  7. ASPIRIN [Concomitant]
  8. CRESTOR [Concomitant]
  9. QVAR [Concomitant]
  10. ALBUTEROL                          /00139501/ [Concomitant]
  11. PATANASE [Concomitant]
  12. LOMOTIL                            /00034001/ [Concomitant]

REACTIONS (7)
  - Arthralgia [Unknown]
  - Hypertension [Unknown]
  - Diarrhoea [Unknown]
  - Nausea [Recovered/Resolved]
  - Thyroid disorder [Unknown]
  - Abdominal pain [Unknown]
  - Dermatitis [Unknown]
